FAERS Safety Report 12318468 (Version 1)
Quarter: 2016Q2

REPORT INFORMATION
  Report Type: Spontaneous
  Country: US (occurrence: US)
  Receive Date: 20160429
  Receipt Date: 20160429
  Transmission Date: 20160815
  Serious: No
  Sender: FDA-Public Use
  Company Number: US-TEVA-655054USA

PATIENT
  Sex: Female

DRUGS (2)
  1. NUVIGIL [Suspect]
     Active Substance: ARMODAFINIL
     Indication: PRIMARY PROGRESSIVE MULTIPLE SCLEROSIS
  2. PROVIGIL [Suspect]
     Active Substance: MODAFINIL
     Indication: PRIMARY PROGRESSIVE MULTIPLE SCLEROSIS

REACTIONS (2)
  - Headache [Unknown]
  - Off label use [Unknown]
